FAERS Safety Report 18663654 (Version 3)
Quarter: 2021Q4

REPORT INFORMATION
  Report Type: Report from Study
  Country: NL (occurrence: NL)
  Receive Date: 20201224
  Receipt Date: 20211105
  Transmission Date: 20220303
  Serious: Yes (Other)
  Sender: FDA-Public Use
  Company Number: NL-AMGEN-NLDSL2020126895

PATIENT
  Age: 70 Year
  Sex: Male

DRUGS (19)
  1. PREGABALIN [Suspect]
     Active Substance: PREGABALIN
     Indication: Product used for unknown indication
     Dosage: 75 MILLIGRAM
     Route: 065
  2. XGEVA [Suspect]
     Active Substance: DENOSUMAB
     Indication: Prophylaxis
     Dosage: 120 MILLIGRAM PER MILLILITRE (INJLQD 70MG/ML, 1,7ML) Q4WK
     Route: 058
  3. XGEVA [Suspect]
     Active Substance: DENOSUMAB
     Dosage: 120 MILLIGRAM PER MILLILITRE (INJLQD 70MG/ML, 1,7ML) Q4WK
     Route: 058
  4. XGEVA [Suspect]
     Active Substance: DENOSUMAB
     Dosage: 120 MILLIGRAM PER MILLILITRE, Q4WK
     Route: 058
  5. ENZALUTAMIDE [Concomitant]
     Active Substance: ENZALUTAMIDE
     Dosage: 40 MILLIGRAM, QD (1D4C)
  6. GOSERELIN [Concomitant]
     Active Substance: GOSERELIN
     Dosage: 10.8 MILLIGRAM, Q3MO
  7. XTANDI [Concomitant]
     Active Substance: ENZALUTAMIDE
     Dosage: UNK
  8. CALCIUM CARBONATE\CHOLECALCIFEROL [Concomitant]
     Active Substance: CALCIUM CARBONATE\CHOLECALCIFEROL
     Dosage: 1.25G/800IE (500MG CA), QD
  9. PANTOPRAZOLE [Concomitant]
     Active Substance: PANTOPRAZOLE
     Dosage: 40 MILLIGRAM, QD
  10. TAMSULOSINE                        /01280301/ [Concomitant]
     Dosage: 4 MILLIGRAM, QD
  11. TAMSULOSINE                        /01280301/ [Concomitant]
     Dosage: 0.4 MILLIGRAM, QD (0.4 MILLIGRAM, QD)
  12. RIBOCICLIB [Concomitant]
     Active Substance: RIBOCICLIB
     Dosage: UNK
  13. ATENOLOL [Concomitant]
     Active Substance: ATENOLOL
     Dosage: 25 MILLIGRAM (1D0,5T)
  14. HYDROCHLOROTHIAZIDE [Concomitant]
     Active Substance: HYDROCHLOROTHIAZIDE
     Dosage: 125 MILLIGRAM, QD
  15. POLYETHYLENE GLYCOLS [Concomitant]
     Active Substance: POLYETHYLENE GLYCOLS
     Dosage: 1XD 1-2S
  16. TEMAZEPAM [Concomitant]
     Active Substance: TEMAZEPAM
     Dosage: UNK
  17. ATENOLOL [Concomitant]
     Active Substance: ATENOLOL
     Dosage: 25 MILLIGRAM (1D0,5T)
  18. CYPROTERON [Concomitant]
     Dosage: UNK
  19. PREGABALIN [Concomitant]
     Active Substance: PREGABALIN
     Dosage: UNK

REACTIONS (6)
  - Prostate cancer metastatic [Not Recovered/Not Resolved]
  - Peroneal nerve palsy [Recovering/Resolving]
  - Drug ineffective [Unknown]
  - Hypophagia [Unknown]
  - Terminal state [Unknown]
  - Peroneal nerve palsy [Recovering/Resolving]

NARRATIVE: CASE EVENT DATE: 20200101
